FAERS Safety Report 18058215 (Version 1)
Quarter: 2020Q3

REPORT INFORMATION
  Report Type: Spontaneous
  Country: US (occurrence: US)
  Receive Date: 20200723
  Receipt Date: 20200723
  Transmission Date: 20201103
  Serious: Yes (Other)
  Sender: FDA-Public Use
  Company Number: US-ELI_LILLY_AND_COMPANY-US202007005272

PATIENT
  Age: 67 Year
  Sex: Female

DRUGS (7)
  1. PREDNISONE. [Suspect]
     Active Substance: PREDNISONE
     Indication: PRODUCT USED FOR UNKNOWN INDICATION
     Dosage: 50 MG, EACH MORNING
     Route: 065
     Dates: start: 20200712, end: 20200713
  2. HUMALOG [Suspect]
     Active Substance: INSULIN LISPRO
     Dosage: 18?20 U, UNKNOWN
     Route: 058
  3. HUMULIN N [Suspect]
     Active Substance: INSULIN HUMAN
     Indication: TYPE 2 DIABETES MELLITUS
     Dosage: 8 U, UNKNOWN
     Route: 058
     Dates: start: 20200712
  4. HUMALOG [Suspect]
     Active Substance: INSULIN LISPRO
     Indication: TYPE 2 DIABETES MELLITUS
     Dosage: 18?20 U, UNKNOWN
     Route: 058
     Dates: start: 2015
  5. HUMALOG [Suspect]
     Active Substance: INSULIN LISPRO
     Indication: TYPE 2 DIABETES MELLITUS
     Dosage: 18?20 U, UNKNOWN
     Route: 058
     Dates: start: 2015
  6. PREDNISONE. [Suspect]
     Active Substance: PREDNISONE
     Dosage: 50 MG, EACH EVENING
     Route: 065
     Dates: start: 20200712, end: 20200712
  7. HUMALOG [Suspect]
     Active Substance: INSULIN LISPRO
     Dosage: 18?20 U, UNKNOWN
     Route: 058

REACTIONS (15)
  - Aortic stenosis [Unknown]
  - Blood glucose decreased [Recovered/Resolved]
  - Palpitations [Recovered/Resolved]
  - Expired product administered [Unknown]
  - Oral discomfort [Recovered/Resolved]
  - Blood glucose increased [Not Recovered/Not Resolved]
  - Hepatic cirrhosis [Unknown]
  - Cardiac murmur [Unknown]
  - Erythema [Recovered/Resolved]
  - Panic attack [Recovered/Resolved]
  - Eye swelling [Recovered/Resolved]
  - Nausea [Recovered/Resolved]
  - Thirst [Recovered/Resolved]
  - Cough [Recovered/Resolved]
  - Headache [Recovered/Resolved]

NARRATIVE: CASE EVENT DATE: 2015
